FAERS Safety Report 24155948 (Version 1)
Quarter: 2024Q3

REPORT INFORMATION
  Report Type: Spontaneous
  Country: US (occurrence: US)
  Receive Date: 20240731
  Receipt Date: 20240731
  Transmission Date: 20241017
  Serious: Yes (Other)
  Sender: ACCORD
  Company Number: US-Accord-437780

PATIENT
  Age: 70 Year
  Sex: Male
  Weight: 80.74 kg

DRUGS (5)
  1. CLONAZEPAM [Suspect]
     Active Substance: CLONAZEPAM
     Indication: Anxiety
     Dosage: THREE TIMES DAILY
     Route: 048
  2. Cartia [Concomitant]
     Indication: Atrial fibrillation
  3. EVOLOCUMAB [Concomitant]
     Active Substance: EVOLOCUMAB
     Indication: Blood cholesterol
     Dosage: EVERY 3RD WEEK
  4. CLONIDINE [Concomitant]
     Active Substance: CLONIDINE
     Indication: Blood pressure measurement
     Dosage: TO WORK WITH CLONAZEPAM
  5. CLONAZEPAM [Concomitant]
     Active Substance: CLONAZEPAM

REACTIONS (2)
  - Swelling face [Recovering/Resolving]
  - Circulatory collapse [Unknown]
